FAERS Safety Report 21997046 (Version 3)
Quarter: 2024Q3

REPORT INFORMATION
  Report Type: Report from Study
  Country: UY (occurrence: UY)
  Receive Date: 20230215
  Receipt Date: 20240805
  Transmission Date: 20241017
  Serious: Yes (Congenital Anomaly)
  Sender: ABBVIE
  Company Number: UY-ABBVIE-4306749

PATIENT

DRUGS (1)
  1. UPADACITINIB [Suspect]
     Active Substance: UPADACITINIB
     Indication: Maternal exposure timing unspecified

REACTIONS (2)
  - Cytogenetic abnormality [Unknown]
  - Foetal exposure during pregnancy [Unknown]
